FAERS Safety Report 25524166 (Version 1)
Quarter: 2025Q3

REPORT INFORMATION
  Report Type: Spontaneous
  Country: EU (occurrence: EU)
  Receive Date: 20250707
  Receipt Date: 20250707
  Transmission Date: 20251020
  Serious: Yes (Other)
  Sender: MYLAN
  Company Number: EU-MEDICE-2025-MHF-16518

PATIENT
  Age: 14 Year
  Sex: Female

DRUGS (4)
  1. METHYLPHENIDATE [Suspect]
     Active Substance: METHYLPHENIDATE
     Indication: Disturbance in attention
  2. METHYLPHENIDATE [Suspect]
     Active Substance: METHYLPHENIDATE
     Route: 065
  3. METHYLPHENIDATE [Suspect]
     Active Substance: METHYLPHENIDATE
     Route: 065
  4. METHYLPHENIDATE [Suspect]
     Active Substance: METHYLPHENIDATE

REACTIONS (3)
  - Petit mal epilepsy [Recovered/Resolved]
  - Non-epileptic paroxysmal event [Recovered/Resolved]
  - Off label use [Recovered/Resolved]
